FAERS Safety Report 4398105-7 (Version None)
Quarter: 2004Q3

REPORT INFORMATION
  Report Type: 
  Country: None (occurrence: None)
  Receive Date: 20040713
  Receipt Date: 20040625
  Transmission Date: 20050211
  Serious: Yes (Hospitalization)
  Sender: FDA-Public Use
  Company Number: DSA_24626_2004

PATIENT
  Age: 87 Year
  Sex: Male

DRUGS (8)
  1. DILTIAZEM HYDROCHLORIDE [Suspect]
     Indication: HYPERTENSION
     Dosage: 200 MG Q DAY PO
     Route: 048
     Dates: start: 20001015, end: 20040422
  2. ACEBUTOLOL [Suspect]
     Indication: HYPERTENSION
     Dosage: 100 MG Q DAY PO
     Route: 048
     Dates: start: 20030601
  3. ZESTORETIC [Suspect]
     Indication: CARDIAC DISORDER
  4. PLAVIX [Concomitant]
  5. NITROGLYCERIN [Concomitant]
  6. JOSIR [Concomitant]
  7. PENTOFLUX [Concomitant]
  8. HALDOL [Concomitant]

REACTIONS (16)
  - ATRIOVENTRICULAR BLOCK FIRST DEGREE [None]
  - BLOOD CREATININE INCREASED [None]
  - BLOOD GLUCOSE INCREASED [None]
  - BLOOD SODIUM INCREASED [None]
  - BLOOD UREA INCREASED [None]
  - BRADYCARDIA [None]
  - CREATININE RENAL CLEARANCE DECREASED [None]
  - DIZZINESS [None]
  - DRUG INTERACTION [None]
  - ELECTROCARDIOGRAM PR PROLONGATION [None]
  - ELECTROCARDIOGRAM QRS COMPLEX PROLONGED [None]
  - HYPERKALAEMIA [None]
  - HYPOTENSION [None]
  - KIDNEY SMALL [None]
  - LOCKED-IN SYNDROME [None]
  - MALAISE [None]
